FAERS Safety Report 8196214-8 (Version None)
Quarter: 2012Q1

REPORT INFORMATION
  Report Type: 
  Country: None (occurrence: None)
  Receive Date: 20120307
  Receipt Date: 20120307
  Transmission Date: 20120608
  Serious: Yes (Hospitalization)
  Sender: FDA-Public Use
  Company Number: None

PATIENT
  Sex: Male
  Weight: 83.5 kg

DRUGS (2)
  1. TARCEVA [Suspect]
     Dosage: 4300 MG
  2. GEMCITABINE HYDROCHLORIDE [Suspect]
     Dosage: 11520 MG

REACTIONS (9)
  - PNEUMOMEDIASTINUM [None]
  - OXYGEN SATURATION DECREASED [None]
  - OESOPHAGEAL STENOSIS [None]
  - HYPOKALAEMIA [None]
  - HYPOPHOSPHATAEMIA [None]
  - PNEUMOTHORAX [None]
  - OESOPHAGEAL RUPTURE [None]
  - DYSPNOEA [None]
  - LYMPHOPENIA [None]
